FAERS Safety Report 5055970-8 (Version None)
Quarter: 2006Q3

REPORT INFORMATION
  Report Type: 
  Country: None (occurrence: None)
  Receive Date: 20060714
  Receipt Date: 20060707
  Transmission Date: 20061208
  Serious: Yes (Hospitalization)
  Sender: FDA-Public Use
  Company Number: 226648

PATIENT
  Age: 48 Year
  Sex: Male

DRUGS (7)
  1. ERLOTINIB (ERLOTINIB) TABLET [Suspect]
     Indication: TONSIL CANCER
     Dosage: 100 MG, QD, ORAL
     Route: 048
     Dates: start: 20060603
  2. BEVACIZUMAB (BEVACIZUMAB) PWDR + SOLVENT, INFUSION SOLN, 100MG [Suspect]
     Indication: TONSIL CANCER
     Dosage: 10 MG/KG, QW2, INTRAVENOUS
     Route: 042
     Dates: start: 20060517
  3. RADIATION THERAPY [Concomitant]
  4. CISPLATIN [Concomitant]
  5. AUGMENTIN '250' [Concomitant]
  6. NYSTATIN [Concomitant]
  7. DURAGESIC-100 [Concomitant]

REACTIONS (17)
  - BLOOD ALBUMIN DECREASED [None]
  - BLOOD CHLORIDE DECREASED [None]
  - BLOOD SODIUM DECREASED [None]
  - CANDIDIASIS [None]
  - DECREASED APPETITE [None]
  - DEHYDRATION [None]
  - DYSPHAGIA [None]
  - MALAISE [None]
  - MUCOSAL INFLAMMATION [None]
  - NEUTROPHIL COUNT INCREASED [None]
  - ORAL INTAKE REDUCED [None]
  - PHARYNGOLARYNGEAL PAIN [None]
  - PYREXIA [None]
  - URINE FLOW DECREASED [None]
  - URINE KETONE BODY PRESENT [None]
  - VOMITING [None]
  - WEIGHT DECREASED [None]
